FAERS Safety Report 4531984-9 (Version None)
Quarter: 2004Q4

REPORT INFORMATION
  Report Type: 
  Country: None (occurrence: None)
  Receive Date: 20041217
  Receipt Date: 20041207
  Transmission Date: 20050328
  Serious: No
  Sender: FDA-Public Use
  Company Number: 02100-JPN-04-0336

PATIENT
  Age: 73 Year
  Sex: Male

DRUGS (3)
  1. CILOSTAZOL, TICLOPIDINE HYDROCHLORIDE, LITHIUM CARBONATE [Suspect]
     Dosage: 200 MG; ORAL
     Route: 048
     Dates: start: 20041126, end: 20041202
  2. TICLOPIDINE HCL [Suspect]
     Dosage: 200 MG; ORAL
     Route: 048
     Dates: start: 20041015, end: 20041126
  3. LITHIUM CARBONATE [Suspect]
     Dosage: NI; ORAL
     Route: 048
     Dates: end: 20041129

REACTIONS (2)
  - HEPATIC FUNCTION ABNORMAL [None]
  - RENAL FAILURE ACUTE [None]
